FAERS Safety Report 15848606 (Version 2)
Quarter: 2019Q4

REPORT INFORMATION
  Report Type: Report from Study
  Country: CA (occurrence: CA)
  Receive Date: 20190121
  Receipt Date: 20191007
  Transmission Date: 20200122
  Serious: Yes (Other)
  Sender: FDA-Public Use
  Company Number: CA-EISAI MEDICAL RESEARCH-EC-2019-050497

PATIENT
  Age: 61 Year
  Sex: Male

DRUGS (2)
  1. LENVATINIB [Suspect]
     Active Substance: LENVATINIB
     Indication: PRODUCT USED FOR UNKNOWN INDICATION
  2. AFINITOR [Suspect]
     Active Substance: EVEROLIMUS
     Indication: METASTATIC RENAL CELL CARCINOMA
     Route: 048

REACTIONS (9)
  - Therapeutic response decreased [Unknown]
  - Malignant neoplasm progression [Unknown]
  - Erythema [Unknown]
  - Nasal ulcer [Unknown]
  - Pruritus [Unknown]
  - Oropharyngeal pain [Unknown]
  - Thrombosis [Unknown]
  - Acne [Unknown]
  - Epistaxis [Unknown]
